FAERS Safety Report 7310766-9 (Version None)
Quarter: 2011Q1

REPORT INFORMATION
  Report Type: 
  Country: None (occurrence: None)
  Receive Date: 20110224
  Receipt Date: 20110221
  Transmission Date: 20110831
  Serious: Yes (Hospitalization)
  Sender: FDA-Public Use
  Company Number: DE-SANOFI-AVENTIS-2011SA010920

PATIENT
  Age: 40 Year
  Sex: Male

DRUGS (2)
  1. MULTAQ [Suspect]
     Route: 048
     Dates: start: 20101031, end: 20101101
  2. MULTAQ [Suspect]
     Indication: ATRIAL FIBRILLATION
     Dosage: DOSAGE: TOOK SPORADICALLY 1/2 - 1 TABLET.
     Route: 048

REACTIONS (3)
  - NAUSEA [None]
  - DRUG INTOLERANCE [None]
  - TREMOR [None]
